FAERS Safety Report 6522109-9 (Version None)
Quarter: 2009Q4

REPORT INFORMATION
  Report Type: 
  Country: None (occurrence: None)
  Receive Date: 20091229
  Receipt Date: 20091229
  Transmission Date: 20100525
  Serious: No
  Sender: FDA-Public Use
  Company Number: None

PATIENT
  Age: 58 Year
  Sex: Male
  Weight: 97 kg

DRUGS (1)
  1. NPH INSULIN 70/30 [Suspect]
     Indication: TYPE 1 DIABETES MELLITUS
     Dosage: 40 UNITS TID WITH MEALS SQ
     Route: 058
     Dates: start: 20091017, end: 20091027

REACTIONS (4)
  - BLOOD GLUCOSE DECREASED [None]
  - CHEST PAIN [None]
  - HYPERHIDROSIS [None]
  - TREMOR [None]
